FAERS Safety Report 22165277 (Version 2)
Quarter: 2023Q2

REPORT INFORMATION
  Report Type: Spontaneous
  Country: US (occurrence: US)
  Receive Date: 20230403
  Receipt Date: 20230502
  Transmission Date: 20230721
  Serious: Yes (Other)
  Sender: FDA-Public Use
  Company Number: US-SA-SAC20230330000621

PATIENT
  Age: 71 Year
  Sex: Male

DRUGS (18)
  1. DUPIXENT [Suspect]
     Active Substance: DUPILUMAB
     Indication: Psoriasis
     Dosage: UNK (2:28)
     Route: 058
     Dates: start: 20230215
  2. DUPIXENT [Suspect]
     Active Substance: DUPILUMAB
     Indication: Erythema
     Dosage: 1 DF, QOW
     Route: 058
     Dates: start: 20230105, end: 20230427
  3. DOXEPIN [Concomitant]
     Active Substance: DOXEPIN
     Dosage: UNK
  4. DOXEPIN [Concomitant]
     Active Substance: DOXEPIN
  5. GABAPENTIN [Concomitant]
     Active Substance: GABAPENTIN
     Dosage: UNK
  6. GABAPENTIN [Concomitant]
     Active Substance: GABAPENTIN
  7. HYDROCHLOROTHIAZIDE [Concomitant]
     Active Substance: HYDROCHLOROTHIAZIDE
     Dosage: UNK
  8. HYDROCHLOROTHIAZIDE [Concomitant]
     Active Substance: HYDROCHLOROTHIAZIDE
  9. LISINOPRIL [Concomitant]
     Active Substance: LISINOPRIL
     Dosage: UNK
  10. LISINOPRIL [Concomitant]
     Active Substance: LISINOPRIL
  11. PREDNISONE [Concomitant]
     Active Substance: PREDNISONE
     Dosage: UNK
  12. PREDNISONE [Concomitant]
     Active Substance: PREDNISONE
  13. SIMVASTATIN [Concomitant]
     Active Substance: SIMVASTATIN
     Dosage: UNK
  14. SIMVASTATIN [Concomitant]
     Active Substance: SIMVASTATIN
  15. LASIX [Concomitant]
     Active Substance: FUROSEMIDE
     Dosage: UNK
  16. LASIX [Concomitant]
     Active Substance: FUROSEMIDE
  17. METFORMIN [Concomitant]
     Active Substance: METFORMIN HYDROCHLORIDE
     Dosage: UNK
  18. METFORMIN [Concomitant]
     Active Substance: METFORMIN HYDROCHLORIDE

REACTIONS (3)
  - T-cell lymphoma [Unknown]
  - Skin disorder [Recovering/Resolving]
  - Product use in unapproved indication [Unknown]

NARRATIVE: CASE EVENT DATE: 20230215
